FAERS Safety Report 8347119-0 (Version None)
Quarter: 2012Q1

REPORT INFORMATION
  Report Type: 
  Country: None (occurrence: None)
  Receive Date: 20120315
  Receipt Date: 20110419
  Transmission Date: 20120608
  Serious: No
  Sender: FDA-Public Use
  Company Number: PHHY2011US34503

PATIENT
  Age: 32 Year
  Sex: Male

DRUGS (5)
  1. ALLEGRA-D 12 HOUR [Concomitant]
  2. CRESTOR [Concomitant]
  3. AVONEX [Concomitant]
  4. GILENYA [Suspect]
     Indication: MULTIPLE SCLEROSIS
     Dosage: 0.5 MG, QD, ORAL
     Route: 048
     Dates: start: 20110411, end: 20110419
  5. FISH OIL (FISH OIL) [Concomitant]

REACTIONS (1)
  - FATIGUE [None]
